FAERS Safety Report 13477694 (Version 2)
Quarter: 2017Q2

REPORT INFORMATION
  Report Type: Spontaneous
  Country: AT (occurrence: AT)
  Receive Date: 20170425
  Receipt Date: 20170505
  Transmission Date: 20170830
  Serious: No
  Sender: FDA-Public Use
  Company Number: AT-ENDO PHARMACEUTICALS INC-2017-002534

PATIENT
  Sex: Female

DRUGS (1)
  1. FROVA [Suspect]
     Active Substance: FROVATRIPTAN SUCCINATE
     Indication: MIGRAINE
     Dosage: 2.5 MG DAILY
     Route: 065

REACTIONS (2)
  - Gait disturbance [Recovered/Resolved]
  - Muscle spasms [Recovered/Resolved]
